FAERS Safety Report 20805357 (Version 2)
Quarter: 2022Q2

REPORT INFORMATION
  Report Type: Spontaneous
  Country: BR (occurrence: BR)
  Receive Date: 20220509
  Receipt Date: 20220609
  Transmission Date: 20220721
  Serious: Yes (Death, Hospitalization, Other)
  Sender: FDA-Public Use
  Company Number: BR-ABBVIE-22K-020-4387894-00

PATIENT
  Age: 38 Year
  Sex: Male

DRUGS (1)
  1. HUMIRA [Suspect]
     Active Substance: ADALIMUMAB
     Indication: Crohn^s disease
     Route: 058
     Dates: start: 2013

REACTIONS (11)
  - Infection [Fatal]
  - Loss of consciousness [Unknown]
  - Internal haemorrhage [Unknown]
  - Haemorrhage [Unknown]
  - Sepsis [Unknown]
  - Condition aggravated [Unknown]
  - Asthenia [Not Recovered/Not Resolved]
  - Swelling [Unknown]
  - Crohn^s disease [Unknown]
  - Pyrexia [Unknown]
  - Therapeutic product effect decreased [Unknown]

NARRATIVE: CASE EVENT DATE: 20190101
